FAERS Safety Report 5563065-X (Version None)
Quarter: 2007Q4

REPORT INFORMATION
  Report Type: 
  Country: None (occurrence: None)
  Receive Date: 20071217
  Receipt Date: 20071211
  Transmission Date: 20080405
  Serious: Yes (Other)
  Sender: FDA-Public Use
  Company Number: A0695201A

PATIENT
  Age: 12 Year
  Sex: Female
  Weight: 67 kg

DRUGS (4)
  1. HYCAMTIN [Suspect]
     Indication: EWING'S SARCOMA
     Dosage: 1.2MG SEE DOSAGE TEXT
     Route: 042
     Dates: start: 20061120
  2. CYCLOPHOSPHAMIDE [Concomitant]
     Indication: EWING'S SARCOMA
     Dosage: 415MG SEE DOSAGE TEXT
     Route: 042
     Dates: start: 20061120
  3. FILGRASTIM [Concomitant]
     Indication: NEUTROPENIA
     Route: 058
  4. SEPTRA [Concomitant]
     Route: 048

REACTIONS (1)
  - LYMPHOPENIA [None]
